FAERS Safety Report 10155679 (Version 1)
Quarter: 2014Q2

REPORT INFORMATION
  Report Type: Report from Study
  Country: US (occurrence: US)
  Receive Date: 20140506
  Receipt Date: 20140506
  Transmission Date: 20141212
  Serious: Yes (Other)
  Sender: FDA-Public Use
  Company Number: PHEH2014US008680

PATIENT
  Sex: Female
  Weight: 68.4 kg

DRUGS (5)
  1. TOBI PODHALER [Suspect]
     Indication: BRONCHIECTASIS
     Dosage: 112 MG, BID
     Route: 055
     Dates: start: 20131203, end: 20131217
  2. TOBI PODHALER [Suspect]
     Indication: PSEUDOMONAS INFECTION
  3. XOPENEX [Concomitant]
     Dosage: 2 DF (2 VIALS), QID
     Route: 055
  4. SPIRIVA [Concomitant]
     Indication: CHRONIC OBSTRUCTIVE PULMONARY DISEASE
     Dosage: UNK
     Route: 055
  5. VARENICLINE [Concomitant]
     Indication: SMOKING CESSATION THERAPY
     Dosage: 1 MG, BID
     Route: 048
     Dates: start: 20140128

REACTIONS (4)
  - Obstructive airways disorder [Recovered/Resolved]
  - Wheezing [Recovered/Resolved]
  - Chest discomfort [Recovered/Resolved]
  - Dyspnoea [Unknown]
